FAERS Safety Report 5295399-0 (Version None)
Quarter: 2007Q2

REPORT INFORMATION
  Report Type: 
  Country: None (occurrence: None)
  Receive Date: 20070412
  Receipt Date: 20070402
  Transmission Date: 20071010
  Serious: Yes (Hospitalization, Other)
  Sender: FDA-Public Use
  Company Number: FR-PFIZER INC-2007025967

PATIENT
  Age: 57 Year
  Sex: Female

DRUGS (2)
  1. TAHOR [Suspect]
     Indication: HYPERLIPIDAEMIA
     Route: 048
     Dates: start: 20070110, end: 20070123
  2. EZETIMIBE/SIMVASTATIN [Suspect]
     Dosage: TEXT:1 DF-FREQ:INTERVAL: EVERY DAY
     Route: 048
     Dates: start: 20070123, end: 20070129

REACTIONS (4)
  - ALANINE AMINOTRANSFERASE INCREASED [None]
  - ASPARTATE AMINOTRANSFERASE INCREASED [None]
  - EOSINOPHILIA [None]
  - GAMMA-GLUTAMYLTRANSFERASE INCREASED [None]
